FAERS Safety Report 23686663 (Version 2)
Quarter: 2024Q2

REPORT INFORMATION
  Report Type: Report from Study
  Country: US (occurrence: US)
  Receive Date: 20240329
  Receipt Date: 20240603
  Transmission Date: 20240716
  Serious: Yes (Other)
  Sender: FDA-Public Use
  Company Number: US-002147023-NVSC2024US063757

PATIENT
  Sex: Female

DRUGS (1)
  1. KESIMPTA [Suspect]
     Active Substance: OFATUMUMAB
     Indication: Product used for unknown indication
     Dosage: UNK
     Route: 065

REACTIONS (5)
  - Multiple sclerosis [Unknown]
  - Viral infection [Unknown]
  - Vomiting [Unknown]
  - Nasopharyngitis [Unknown]
  - Malaise [Unknown]

NARRATIVE: CASE EVENT DATE: 20240301
